FAERS Safety Report 6438485-1 (Version None)
Quarter: 2009Q4

REPORT INFORMATION
  Report Type: 
  Country: None (occurrence: None)
  Receive Date: 20091112
  Receipt Date: 20091105
  Transmission Date: 20100525
  Serious: Yes (Hospitalization)
  Sender: FDA-Public Use
  Company Number: JP-ABBOTT-09P-087-0603815-00

PATIENT
  Sex: Female

DRUGS (2)
  1. LEUPLIN SR FOR INJECTION 11.25 MG [Suspect]
     Indication: BREAST CANCER
     Route: 058
     Dates: start: 20071114, end: 20081022
  2. TASUOMIN [Concomitant]
     Indication: BREAST CANCER
     Route: 048
     Dates: end: 20090120

REACTIONS (1)
  - SCHIZOPHRENIA [None]
